FAERS Safety Report 20797271 (Version 5)
Quarter: 2023Q1

REPORT INFORMATION
  Report Type: Spontaneous
  Country: PT (occurrence: PT)
  Receive Date: 20220506
  Receipt Date: 20230315
  Transmission Date: 20230417
  Serious: Yes (Hospitalization, Other)
  Sender: FDA-Public Use
  Company Number: PT-009507513-1902PRT010623

PATIENT
  Age: 6 Year
  Sex: Male
  Weight: 21 kg

DRUGS (27)
  1. FENTANYL [Suspect]
     Active Substance: FENTANYL
     Indication: Induction of anaesthesia
     Dosage: 0.06 MILLIGRAM (0.06 MG)
     Route: 065
  2. SUGAMMADEX [Suspect]
     Active Substance: SUGAMMADEX
     Indication: Neuromuscular blockade
     Dosage: 42 MILLIGRAM, 42 MILLIGRAM (34 MILLIGRAM (DOSE 2 MG/KG) SU
     Route: 042
  3. SUGAMMADEX [Suspect]
     Active Substance: SUGAMMADEX
     Indication: Anaesthesia reversal
  4. BRIDION [Suspect]
     Active Substance: SUGAMMADEX
     Indication: Neuromuscular blockade reversal
     Dosage: 40 MILLIGRAM (40 MG, (2MG/KG))
     Route: 065
  5. BRIDION [Suspect]
     Active Substance: SUGAMMADEX
     Dosage: 42 MILLIGRAM (42 MG, (2MG/KG))
     Route: 065
  6. PROPOFOL [Suspect]
     Active Substance: PROPOFOL
     Indication: Induction of anaesthesia
     Dosage: 50 MILLIGRAM (50 MG)
     Route: 065
  7. FENTANYL [Suspect]
     Active Substance: FENTANYL
     Indication: General anaesthesia
     Dosage: 2 MICROGRAM/KILOGRAM
     Route: 042
  8. FENTANYL [Suspect]
     Active Substance: FENTANYL
     Indication: Induction of anaesthesia
     Dosage: 0.06 MILLIGRAM
     Route: 042
  9. PROPOFOL [Suspect]
     Active Substance: PROPOFOL
     Indication: General anaesthesia
     Dosage: 3 MILLIGRAM/KILOGRAM
     Route: 042
  10. PROPOFOL [Suspect]
     Active Substance: PROPOFOL
     Indication: Induction of anaesthesia
     Dosage: 50 MILLIGRAM
     Route: 042
  11. ROCURONIUM BROMIDE [Suspect]
     Active Substance: ROCURONIUM BROMIDE
     Indication: Induction of anaesthesia
     Dosage: 0.3 MILLIGRAM/KILOGRAM
     Route: 042
  12. ROCURONIUM BROMIDE [Suspect]
     Active Substance: ROCURONIUM BROMIDE
     Indication: General anaesthesia
     Dosage: 0.6 MILLIGRAM/KILOGRAM
     Route: 042
  13. ONDANSETRON [Concomitant]
     Active Substance: ONDANSETRON
     Indication: Prophylaxis of nausea and vomiting
     Dosage: 2 MILLIGRAM (2 MG, 30 MINUTES BEFORE END OF SURGERY)
     Route: 042
  14. ONDANSETRON [Concomitant]
     Active Substance: ONDANSETRON
     Dosage: UNK
     Route: 065
  15. SEVOFLURANE [Concomitant]
     Active Substance: SEVOFLURANE
     Indication: Maintenance of anaesthesia
     Dosage: UNK
     Route: 065
  16. SEVOFLURANE [Concomitant]
     Active Substance: SEVOFLURANE
     Indication: Bradycardia
  17. SEVOFLURANE [Concomitant]
     Active Substance: SEVOFLURANE
     Indication: Bronchospasm
  18. KETOROLAC [Concomitant]
     Active Substance: KETOROLAC TROMETHAMINE
     Indication: Analgesic therapy
     Dosage: 10 MILLIGRAM (10 MG, 30 MINUTES BEFORE THE END OF THE SURGERY)
     Route: 042
  19. KETOROLAC [Concomitant]
     Active Substance: KETOROLAC TROMETHAMINE
     Indication: Postoperative analgesia
  20. OXYGEN [Concomitant]
     Active Substance: OXYGEN
     Indication: Maintenance of anaesthesia
     Dosage: UNK
     Route: 065
  21. ACETAMINOPHEN [Concomitant]
     Active Substance: ACETAMINOPHEN
     Indication: Analgesic therapy
     Dosage: 320 MILLIGRAM (320 MG, 30 MINUTES BEFORE THE END OF SURGERY)
     Route: 042
  22. ACETAMINOPHEN [Concomitant]
     Active Substance: ACETAMINOPHEN
     Indication: Postoperative analgesia
     Dosage: UNK
     Route: 065
  23. ACETAMINOPHEN [Concomitant]
     Active Substance: ACETAMINOPHEN
     Indication: Oropharyngeal pain
  24. DEXAMETHASONE [Concomitant]
     Active Substance: DEXAMETHASONE
     Indication: Induction of anaesthesia
     Dosage: 3 MILLIGRAM (3 MG)
     Route: 065
  25. AMOXICILLIN TRIHYDRATE [Concomitant]
     Active Substance: AMOXICILLIN
     Indication: Product used for unknown indication
     Dosage: 650 MILLIGRAM (650 MG)
     Route: 065
  26. TRAMADOL HYDROCHLORIDE [Concomitant]
     Active Substance: TRAMADOL HYDROCHLORIDE
     Indication: Analgesic therapy
     Dosage: 40 MILLIGRAM (40 MG, 30 MINUTES BEFORE THE END OF THE SURGERY)
     Route: 065
  27. SALINE [Concomitant]
     Active Substance: SODIUM CHLORIDE
     Indication: Vehicle solution use
     Dosage: UNK, SUGAMMADEX WAS DILUTED IN SODIUM-CHLORIDE
     Route: 042

REACTIONS (3)
  - Hypoxia [Unknown]
  - Bronchospasm [Unknown]
  - Bradycardia [Recovered/Resolved]
